FAERS Safety Report 10898477 (Version 1)
Quarter: 2015Q1

REPORT INFORMATION
  Report Type: Report from Study
  Country: US (occurrence: US)
  Receive Date: 20150309
  Receipt Date: 20150309
  Transmission Date: 20150721
  Serious: No
  Sender: FDA-Public Use
  Company Number: US-ABBVIE-14P-163-1303478-00

PATIENT
  Age: 52 Year
  Sex: Female

DRUGS (2)
  1. NORETHINDRONE ACETATE. [Suspect]
     Active Substance: NORETHINDRONE ACETATE
     Indication: OFF LABEL USE
     Route: 065
     Dates: start: 20140827
  2. LUPRON DEPOT [Suspect]
     Active Substance: LEUPROLIDE ACETATE
     Indication: OFF LABEL USE
     Route: 065
     Dates: start: 20140827

REACTIONS (2)
  - Mood swings [Not Recovered/Not Resolved]
  - Hot flush [Not Recovered/Not Resolved]

NARRATIVE: CASE EVENT DATE: 20140927
